FAERS Safety Report 4767140-9 (Version None)
Quarter: 2005Q3

REPORT INFORMATION
  Report Type: 
  Country: None (occurrence: None)
  Receive Date: 20050909
  Receipt Date: 20050909
  Transmission Date: 20060218
  Serious: Yes (Hospitalization)
  Sender: FDA-Public Use
  Company Number: None

PATIENT
  Sex: Female
  Weight: 97.5234 kg

DRUGS (7)
  1. TAXOTERE [Suspect]
     Indication: BREAST CANCER METASTATIC
     Dosage: 113MG DAY 1 EVERY 21 IV DRIP
     Route: 041
     Dates: start: 20041104, end: 20050513
  2. GEMCITABINE 750 MG/M2 [Suspect]
     Indication: BREAST CANCER METASTATIC
     Dosage: DAY 1+8 EVERY 21 D IV DRIP
     Route: 041
     Dates: start: 20041104, end: 20050513
  3. NEUPOGEN [Concomitant]
  4. NEURONTIN [Concomitant]
  5. PROTONIX [Concomitant]
  6. DESYREL [Concomitant]
  7. TENORMIN [Concomitant]

REACTIONS (2)
  - CLOSTRIDIUM COLITIS [None]
  - DIVERTICULITIS [None]
